FAERS Safety Report 12385659 (Version 1)
Quarter: 2016Q2

REPORT INFORMATION
  Report Type: Spontaneous
  Country: US (occurrence: US)
  Receive Date: 20160519
  Receipt Date: 20160519
  Transmission Date: 20160815
  Serious: No
  Sender: FDA-Public Use
  Company Number: US-GLAXOSMITHKLINE-US2016069745

PATIENT
  Sex: Female

DRUGS (3)
  1. GINGER. [Concomitant]
     Active Substance: GINGER
     Indication: PRODUCT USED FOR UNKNOWN INDICATION
     Dosage: UNK
  2. VOLTAREN [Suspect]
     Active Substance: DICLOFENAC SODIUM
     Indication: PAIN IN EXTREMITY
  3. VOLTAREN [Suspect]
     Active Substance: DICLOFENAC SODIUM
     Indication: NECK PAIN
     Dosage: UNK
     Dates: start: 20160512

REACTIONS (4)
  - Drug prescribing error [Unknown]
  - Incorrect dose administered [Unknown]
  - Off label use [Unknown]
  - Nausea [Not Recovered/Not Resolved]
